FAERS Safety Report 11229349 (Version 1)
Quarter: 2015Q2

REPORT INFORMATION
  Report Type: Report from Study
  Country: US (occurrence: US)
  Receive Date: 20150630
  Receipt Date: 20150630
  Transmission Date: 20150821
  Serious: Yes (Hospitalization)
  Sender: FDA-Public Use
  Company Number: US-MUNDIPHARMA DS AND PHARMACOVIGILANCE-USA-2015-0123524

PATIENT
  Age: 62 Year
  Sex: Female

DRUGS (2)
  1. BTDS PATCH [Suspect]
     Active Substance: BUPRENORPHINE
     Indication: OSTEOARTHRITIS
     Dosage: 20 MCG/HR, WEEKLY
     Route: 062
  2. BTDS PATCH [Suspect]
     Active Substance: BUPRENORPHINE
     Indication: MYALGIA
     Dosage: UNK, WEEKLY
     Route: 062
     Dates: start: 201412

REACTIONS (4)
  - Drug withdrawal syndrome [Unknown]
  - Feeling of body temperature change [Unknown]
  - Urinary incontinence [Unknown]
  - Faecal incontinence [Unknown]

NARRATIVE: CASE EVENT DATE: 201505
